FAERS Safety Report 21932341 (Version 1)
Quarter: 2023Q1

REPORT INFORMATION
  Report Type: Spontaneous
  Country: US (occurrence: None)
  Receive Date: 20230131
  Receipt Date: 20230131
  Transmission Date: 20230417
  Serious: Yes (Death)
  Sender: FDA-Public Use
  Company Number: None

PATIENT
  Age: 86 Year
  Sex: Male
  Weight: 83.25 kg

DRUGS (9)
  1. REVLIMID [Suspect]
     Active Substance: LENALIDOMIDE
     Indication: Plasma cell myeloma
     Dosage: FREQUENCY : DAILY;?
     Route: 048
     Dates: start: 20150731
  2. Calcium 1200 mg [Concomitant]
  3. ELIQUIS [Concomitant]
     Active Substance: APIXABAN
  4. FUROSEMIDE [Concomitant]
     Active Substance: FUROSEMIDE
  5. isosorbide mononitrate ER 60 mg [Concomitant]
  6. METOLAZONE [Concomitant]
     Active Substance: METOLAZONE
  7. METOPROLOL SUCCINATE [Concomitant]
     Active Substance: METOPROLOL SUCCINATE
  8. potassium chloride ER 20 mEq [Concomitant]
  9. REVLIMID [Concomitant]
     Active Substance: LENALIDOMIDE

REACTIONS (1)
  - Death [None]

NARRATIVE: CASE EVENT DATE: 20230123
